FAERS Safety Report 26168825 (Version 1)
Quarter: 2025Q4

REPORT INFORMATION
  Report Type: Spontaneous
  Country: US (occurrence: US)
  Receive Date: 20251217
  Receipt Date: 20251217
  Transmission Date: 20260117
  Serious: No
  Sender: PADAGIS
  Company Number: US-PADAGIS-2025PAD01543

PATIENT

DRUGS (1)
  1. TAZAROTENE [Suspect]
     Active Substance: TAZAROTENE
     Indication: Psoriasis
     Dosage: UNK
     Route: 065

REACTIONS (3)
  - Erythema [Unknown]
  - Skin irritation [Unknown]
  - Skin burning sensation [Unknown]
